FAERS Safety Report 10249844 (Version 2)
Quarter: 2015Q3

REPORT INFORMATION
  Report Type: Spontaneous
  Country: US (occurrence: US)
  Receive Date: 20140620
  Receipt Date: 20150717
  Transmission Date: 20151125
  Serious: Yes (Other)
  Sender: FDA-Public Use
  Company Number: US-SA-2014SA078284

PATIENT
  Sex: Female

DRUGS (2)
  1. PLAVIX [Suspect]
     Active Substance: CLOPIDOGREL BISULFATE
     Indication: ACUTE CORONARY SYNDROME
     Route: 048
     Dates: start: 200208, end: 200601
  2. ASPIRIN. [Concomitant]
     Active Substance: ASPIRIN
     Dates: start: 200208

REACTIONS (3)
  - Gastrointestinal haemorrhage [Recovered/Resolved]
  - Ulcer [Unknown]
  - Multiple injuries [Unknown]

NARRATIVE: CASE EVENT DATE: 200208
